FAERS Safety Report 11197501 (Version 5)
Quarter: 2015Q4

REPORT INFORMATION
  Report Type: Report from Study
  Country: US (occurrence: US)
  Receive Date: 20150617
  Receipt Date: 20151215
  Transmission Date: 20160304
  Serious: Yes (Other)
  Sender: FDA-Public Use
  Company Number: US-TEVA-566642USA

PATIENT
  Age: 24 Year
  Sex: Female
  Weight: 81.27 kg

DRUGS (8)
  1. PROVIGIL [Suspect]
     Active Substance: MODAFINIL
     Indication: NARCOLEPSY
     Dates: start: 2015
  2. PROZAC [Concomitant]
     Active Substance: FLUOXETINE HYDROCHLORIDE
     Indication: PANIC ATTACK
     Dosage: 10 MILLIGRAM DAILY;
     Dates: start: 201502
  3. PROVIGIL [Suspect]
     Active Substance: MODAFINIL
     Dates: start: 2015
  4. PROVIGIL [Suspect]
     Active Substance: MODAFINIL
     Dates: start: 201210, end: 2015
  5. PRENATAL VITAMINS [Concomitant]
     Active Substance: VITAMINS
     Indication: PREGNANCY
     Dates: start: 201503
  6. BENTYL [Concomitant]
     Active Substance: DICYCLOMINE HYDROCHLORIDE
     Indication: IRRITABLE BOWEL SYNDROME
  7. BENEFIBER [Concomitant]
     Active Substance: STARCH, WHEAT
     Indication: IRRITABLE BOWEL SYNDROME
     Dosage: 1-2- TBSP
  8. ZANTAC [Concomitant]
     Active Substance: RANITIDINE HYDROCHLORIDE
     Indication: DYSPEPSIA
     Dosage: 150 MILLIGRAM DAILY;
     Dates: start: 20150902

REACTIONS (1)
  - Vanishing twin syndrome [Unknown]

NARRATIVE: CASE EVENT DATE: 20150518
